FAERS Safety Report 6387971-1 (Version None)
Quarter: 2009Q4

REPORT INFORMATION
  Report Type: 
  Country: None (occurrence: None)
  Receive Date: 20091005
  Receipt Date: 20090928
  Transmission Date: 20100525
  Serious: Yes (Death, Other)
  Sender: FDA-Public Use
  Company Number: US-CELGENEUS-163-21880-09041665

PATIENT
  Sex: Male

DRUGS (1)
  1. REVLIMID [Suspect]
     Route: 048
     Dates: start: 20090126, end: 20090217

REACTIONS (5)
  - ACUTE MYELOID LEUKAEMIA [None]
  - CARDIO-RESPIRATORY ARREST [None]
  - DECUBITUS ULCER [None]
  - ENCEPHALOPATHY [None]
  - INFECTION [None]
